FAERS Safety Report 11679562 (Version 2)
Quarter: 2015Q4

REPORT INFORMATION
  Report Type: Spontaneous
  Country: US (occurrence: US)
  Receive Date: 20151027
  Receipt Date: 20151104
  Transmission Date: 20160304
  Serious: No
  Sender: FDA-Public Use
  Company Number: US-ELI_LILLY_AND_COMPANY-US201010001462

PATIENT
  Age: 84 Year
  Sex: Female

DRUGS (3)
  1. FORTEO [Suspect]
     Active Substance: TERIPARATIDE
     Indication: OSTEOPOROSIS
     Dosage: 20 UG, DAILY (1/D)
     Route: 065
     Dates: start: 201009
  2. FORTEO [Suspect]
     Active Substance: TERIPARATIDE
     Dosage: 20 UG, QD
     Route: 065
  3. FORTEO [Suspect]
     Active Substance: TERIPARATIDE
     Dosage: 20 UG, DAILY (1/D)
     Route: 065

REACTIONS (15)
  - Bone disorder [Unknown]
  - Arthralgia [Unknown]
  - Back pain [Unknown]
  - Asthenia [Unknown]
  - Dizziness [Unknown]
  - Adverse event [Unknown]
  - Mobility decreased [Unknown]
  - Fatigue [Unknown]
  - Feeling abnormal [Unknown]
  - Herpes zoster [Recovering/Resolving]
  - Headache [Unknown]
  - Somnolence [Unknown]
  - Nausea [Unknown]
  - Arthritis [Unknown]
  - Pain [Unknown]

NARRATIVE: CASE EVENT DATE: 201009
